FAERS Safety Report 9196161 (Version 1)
Quarter: 2013Q1

REPORT INFORMATION
  Report Type: Spontaneous
  Country: US (occurrence: None)
  Receive Date: 20120703
  Receipt Date: 20120703
  Transmission Date: 20140127
  Serious: No
  Sender: FDA-Public Use
  Company Number: PHEH2012US005451

PATIENT
  Age: 54 Year
  Sex: Female
  Weight: 117 kg

DRUGS (2)
  1. GILENYA [Suspect]
     Indication: MULTIPLE SCLEROSIS
     Route: 048
     Dates: start: 201105
  2. ZOLOFT (SERTRALINE HYDROCHLORIDE) [Concomitant]

REACTIONS (2)
  - Visual impairment [None]
  - Pyrexia [None]
